FAERS Safety Report 19874090 (Version 1)
Quarter: 2021Q3

REPORT INFORMATION
  Report Type: Other
  Country: FR (occurrence: FR)
  Receive Date: 20210923
  Receipt Date: 20210923
  Transmission Date: 20211014
  Serious: Yes (Death, Hospitalization, Other)
  Sender: FDA-Public Use
  Company Number: FR-ROCHE-2912062

PATIENT

DRUGS (7)
  1. TACROLIMUS. [Suspect]
     Active Substance: TACROLIMUS
     Indication: NEPHROTIC SYNDROME
     Route: 065
  2. AZATHIOPRINE. [Suspect]
     Active Substance: AZATHIOPRINE
     Indication: NEPHROTIC SYNDROME
     Route: 065
  3. CICLOSPORIN A [Suspect]
     Active Substance: CYCLOSPORINE
     Indication: NEPHROTIC SYNDROME
     Route: 065
  4. CYCLOPHOSPHAMIDE. [Suspect]
     Active Substance: CYCLOPHOSPHAMIDE
     Indication: NEPHROTIC SYNDROME
     Route: 065
  5. CHLORAMBUCIL [Suspect]
     Active Substance: CHLORAMBUCIL
     Indication: NEPHROTIC SYNDROME
     Route: 065
  6. RITUXIMAB. [Suspect]
     Active Substance: RITUXIMAB
     Indication: NEPHROTIC SYNDROME
     Route: 065
  7. MYCOPHENOLATE MOFETIL. [Suspect]
     Active Substance: MYCOPHENOLATE MOFETIL
     Indication: NEPHROTIC SYNDROME
     Route: 065

REACTIONS (36)
  - Pneumonia bacterial [Unknown]
  - Bladder cancer [Unknown]
  - Arthritis bacterial [Unknown]
  - Pyelonephritis [Fatal]
  - Squamous cell carcinoma [Unknown]
  - Pulmonary embolism [Unknown]
  - Dyslipidaemia [Unknown]
  - Endocarditis bacterial [Unknown]
  - Adrenal insufficiency [Unknown]
  - Waldenstrom^s macroglobulinaemia [Unknown]
  - Deep vein thrombosis [Unknown]
  - Bacterial colitis [Unknown]
  - Cytomegalovirus viraemia [Unknown]
  - Gastrointestinal stromal tumour [Unknown]
  - Peritonitis bacterial [Unknown]
  - Alternaria infection [Unknown]
  - Prostate cancer [Unknown]
  - Colon cancer [Unknown]
  - Bacteraemia [Fatal]
  - Soft tissue infection [Unknown]
  - Peritonitis [Unknown]
  - Breast cancer [Unknown]
  - Mental disorder [Unknown]
  - Gingival hypertrophy [Unknown]
  - Off label use [Unknown]
  - Herpes zoster [Unknown]
  - Renal cancer [Unknown]
  - Rectal cancer [Unknown]
  - Acute kidney injury [Unknown]
  - Tremor [Unknown]
  - Influenza [Unknown]
  - Aspergillus infection [Fatal]
  - Malignant urinary tract neoplasm [Unknown]
  - B-cell lymphoma [Unknown]
  - Osteoporosis [Unknown]
  - Hirsutism [Unknown]
